FAERS Safety Report 20876549 (Version 1)
Quarter: 2022Q2

REPORT INFORMATION
  Report Type: Spontaneous
  Country: US (occurrence: None)
  Receive Date: 20220525
  Receipt Date: 20220525
  Transmission Date: 20220721
  Serious: Yes (Hospitalization)
  Sender: FDA-Public Use
  Company Number: None

PATIENT
  Age: 75 Year
  Sex: Male

DRUGS (1)
  1. COPAXONE [Suspect]
     Active Substance: GLATIRAMER ACETATE
     Indication: Multiple sclerosis
     Dosage: 20MG DAILY SUBCUTANEOUS?
     Route: 058
     Dates: start: 20121025

REACTIONS (2)
  - Acute kidney injury [None]
  - Decubitus ulcer [None]

NARRATIVE: CASE EVENT DATE: 20220304
